FAERS Safety Report 15278983 (Version 1)
Quarter: 2018Q3

REPORT INFORMATION
  Report Type: Spontaneous
  Country: ES (occurrence: ES)
  Receive Date: 20180815
  Receipt Date: 20180815
  Transmission Date: 20181010
  Serious: Yes (Hospitalization)
  Sender: FDA-Public Use
  Company Number: ES-TEVA-2018-ES-939219

PATIENT
  Age: 18 Year
  Sex: Male

DRUGS (4)
  1. VALGANCICLOVIR. [Suspect]
     Active Substance: VALGANCICLOVIR
     Indication: CYTOMEGALOVIRUS COLITIS
     Dosage: 900 MILLIGRAM DAILY;
     Route: 048
  2. GANCICLOVIR. [Suspect]
     Active Substance: GANCICLOVIR
     Indication: CYTOMEGALOVIRUS COLITIS
     Route: 042
     Dates: start: 20170502
  3. SELETALISIB [Concomitant]
     Indication: ACTIVATED PI3 KINASE DELTA SYNDROME
     Route: 065
  4. SIROLIMUS. [Concomitant]
     Active Substance: SIROLIMUS
     Indication: ACTIVATED PI3 KINASE DELTA SYNDROME
     Route: 065

REACTIONS (3)
  - Weight increased [Recovering/Resolving]
  - Hypogammaglobulinaemia [Recovering/Resolving]
  - Hyperglycaemia [Recovering/Resolving]
